FAERS Safety Report 7795224-X (Version None)
Quarter: 2011Q4

REPORT INFORMATION
  Report Type: 
  Country: None (occurrence: None)
  Receive Date: 20111004
  Receipt Date: 20110927
  Transmission Date: 20120403
  Serious: Yes (Other)
  Sender: FDA-Public Use
  Company Number: ES-UCBSA-042287

PATIENT
  Age: 37 Year
  Sex: Female

DRUGS (2)
  1. KEPPRA [Suspect]
     Indication: EPILEPSY
     Route: 048
     Dates: start: 20110301
  2. NO CONCOMITANT MEDICATION [Concomitant]

REACTIONS (2)
  - APNOEA [None]
  - HEADACHE [None]
